FAERS Safety Report 4919403-1 (Version None)
Quarter: 2006Q1

REPORT INFORMATION
  Report Type: 
  Country: None (occurrence: None)
  Receive Date: 20060222
  Receipt Date: 20050509
  Transmission Date: 20060701
  Serious: Yes (Death, Hospitalization)
  Sender: FDA-Public Use
  Company Number: US-MERCK-0505USA01080

PATIENT
  Age: 71 Year
  Sex: Female
  Weight: 91 kg

DRUGS (1)
  1. VIOXX [Suspect]
     Indication: ARTHRALGIA
     Route: 048
     Dates: start: 20010101, end: 20030101

REACTIONS (15)
  - BACK PAIN [None]
  - CONFUSIONAL STATE [None]
  - DEMENTIA [None]
  - DEMENTIA ALZHEIMER'S TYPE [None]
  - EMBOLISM [None]
  - HEADACHE [None]
  - MYOCARDIAL INFARCTION [None]
  - NODULE [None]
  - OSTEOARTHRITIS [None]
  - PNEUMONIA [None]
  - PSYCHOTIC DISORDER [None]
  - PULMONARY EMBOLISM [None]
  - PYREXIA [None]
  - PYURIA [None]
  - SWELLING FACE [None]
